FAERS Safety Report 7409513-1 (Version None)
Quarter: 2011Q2

REPORT INFORMATION
  Report Type: 
  Country: None (occurrence: None)
  Receive Date: 20110412
  Receipt Date: 20110329
  Transmission Date: 20111010
  Serious: Yes (Death, Other)
  Sender: FDA-Public Use
  Company Number: DE-CELGENEUS-062-50794-10101596

PATIENT

DRUGS (1)
  1. VIDAZA [Suspect]
     Dosage: 100 MILLIGRAM/SQ. METER
     Route: 058
     Dates: start: 20070903, end: 20070907

REACTIONS (3)
  - PNEUMONIA [None]
  - DEATH [None]
  - PANCYTOPENIA [None]
